FAERS Safety Report 24751518 (Version 1)
Quarter: 2024Q4

REPORT INFORMATION
  Report Type: Spontaneous
  Country: JO (occurrence: JO)
  Receive Date: 20241219
  Receipt Date: 20241219
  Transmission Date: 20250114
  Serious: Yes (Hospitalization, Other)
  Sender: HIKMA
  Company Number: JO-HIKMA PHARMACEUTICALS USA INC.-JO-H14001-24-11648

PATIENT
  Age: 18 Month
  Sex: Female
  Weight: 10 kg

DRUGS (1)
  1. ACETAMINOPHEN [Suspect]
     Active Substance: ACETAMINOPHEN
     Indication: Product used for unknown indication
     Dosage: 60 MILLILITER (3000 MG; 300 MG/ KG)
     Route: 048

REACTIONS (3)
  - Blindness cortical [Not Recovered/Not Resolved]
  - Leukoencephalopathy [Not Recovered/Not Resolved]
  - Accidental overdose [Unknown]
